FAERS Safety Report 7457936-7 (Version None)
Quarter: 2011Q2

REPORT INFORMATION
  Report Type: 
  Country: None (occurrence: None)
  Receive Date: 20110504
  Receipt Date: 20110429
  Transmission Date: 20111010
  Serious: Yes (Other)
  Sender: FDA-Public Use
  Company Number: US-PFIZER INC-2011092936

PATIENT
  Sex: Female
  Weight: 79.365 kg

DRUGS (3)
  1. ZOLOFT [Suspect]
     Indication: ANXIETY
     Route: 048
  2. COPAXONE [Concomitant]
     Indication: MULTIPLE SCLEROSIS
     Dosage: UNK
     Route: 058
     Dates: start: 19980101
  3. ZOLOFT [Suspect]
     Indication: DEPRESSION
     Dosage: 25 MG, 1X/DAY
     Route: 048
     Dates: start: 20110420

REACTIONS (5)
  - MANIA [None]
  - DRUG DOSE OMISSION [None]
  - PSYCHOTIC DISORDER [None]
  - ANXIETY [None]
  - DEPRESSION [None]
